FAERS Safety Report 19174530 (Version 3)
Quarter: 2021Q2

REPORT INFORMATION
  Report Type: Spontaneous
  Country: US (occurrence: US)
  Receive Date: 20210423
  Receipt Date: 20210514
  Transmission Date: 20210717
  Serious: Yes (Other)
  Sender: FDA-Public Use
  Company Number: US-IPSEN BIOPHARMACEUTICALS, INC.-2021-10109

PATIENT
  Sex: Female

DRUGS (1)
  1. SOMATULINE DEPOT [Suspect]
     Active Substance: LANREOTIDE ACETATE
     Indication: NEUROENDOCRINE TUMOUR
     Dosage: 120MG/ 0.5 ML, UNDER THE SKIN
     Route: 058

REACTIONS (6)
  - Terminal state [Unknown]
  - Illness [Unknown]
  - Asthenia [Unknown]
  - Pneumonia [Unknown]
  - Malaise [Unknown]
  - Feeling abnormal [Unknown]
